FAERS Safety Report 12526426 (Version 1)
Quarter: 2016Q3

REPORT INFORMATION
  Report Type: Spontaneous
  Country: US (occurrence: US)
  Receive Date: 20160705
  Receipt Date: 20160705
  Transmission Date: 20161109
  Serious: No
  Sender: FDA-Public Use
  Company Number: US-LUPIN PHARMACEUTICALS INC.-2016-01558

PATIENT
  Sex: Female
  Weight: 114.41 kg

DRUGS (15)
  1. VITAMIN D3 [Concomitant]
     Active Substance: CHOLECALCIFEROL
     Indication: VITAMIN SUPPLEMENTATION
     Dosage: 50000 UNITS
     Route: 065
  2. LYRICA [Concomitant]
     Active Substance: PREGABALIN
     Route: 048
  3. METFORMIN [Concomitant]
     Active Substance: METFORMIN HYDROCHLORIDE
     Indication: DIABETES MELLITUS
     Route: 065
     Dates: start: 2006
  4. POTASSIUM [Concomitant]
     Active Substance: POTASSIUM
     Indication: HYPOKALAEMIA
     Route: 065
  5. DULOXETINE DELAYED-RELEASE 60 MG CAPSULES USP [Suspect]
     Active Substance: DULOXETINE
     Indication: ANXIETY
     Route: 065
  6. CYCLOBENZAPRINE [Concomitant]
     Active Substance: CYCLOBENZAPRINE
     Indication: MUSCLE SPASMS
     Dosage: 10 MG, 1/2 IN THE MORNING, HALF MID DAY, WHOLE TABLET AT BEDTIME
     Route: 065
  7. ZETIA [Concomitant]
     Active Substance: EZETIMIBE
     Indication: DYSPEPSIA
     Route: 065
  8. TRAMADOL HYDROCHLORIDE. [Concomitant]
     Active Substance: TRAMADOL HYDROCHLORIDE
     Indication: PAIN
     Route: 065
  9. ALPRAZOLAM. [Concomitant]
     Active Substance: ALPRAZOLAM
     Indication: ANXIETY
     Route: 065
     Dates: start: 2011
  10. TEKTURNA [Concomitant]
     Active Substance: ALISKIREN HEMIFUMARATE
     Indication: HYPERTENSION
     Route: 065
  11. LYRICA [Concomitant]
     Active Substance: PREGABALIN
     Indication: NEURALGIA
     Route: 048
  12. AMITRIPTYLINE [Concomitant]
     Active Substance: AMITRIPTYLINE
     Indication: ANXIETY
     Route: 065
     Dates: start: 2006
  13. SIMVASTATIN. [Concomitant]
     Active Substance: SIMVASTATIN
     Indication: BLOOD CHOLESTEROL INCREASED
     Route: 065
  14. CHLORTHALIDONE. [Concomitant]
     Active Substance: CHLORTHALIDONE
     Indication: FLUID RETENTION
     Route: 065
  15. OMEPRAZOLE. [Concomitant]
     Active Substance: OMEPRAZOLE
     Indication: DYSPEPSIA
     Route: 065

REACTIONS (1)
  - Somnolence [Unknown]
